FAERS Safety Report 8894407 (Version 3)
Quarter: 2013Q1

REPORT INFORMATION
  Report Type: Spontaneous
  Country: US (occurrence: US)
  Receive Date: 20121108
  Receipt Date: 20130211
  Transmission Date: 20140127
  Serious: No
  Sender: FDA-Public Use
  Company Number: US-009507513-1211USA002722

PATIENT
  Age: 22 None
  Sex: Female
  Weight: 109.75 kg

DRUGS (2)
  1. NEXPLANON [Suspect]
     Indication: CONTRACEPTION
     Dosage: 1 ROD
     Route: 059
     Dates: start: 20120808, end: 20130103
  2. ADDERALL TABLETS [Concomitant]

REACTIONS (4)
  - Application site discomfort [Not Recovered/Not Resolved]
  - Implant site discolouration [Not Recovered/Not Resolved]
  - Implant site bruising [Not Recovered/Not Resolved]
  - Medical device complication [Unknown]
